FAERS Safety Report 16649498 (Version 1)
Quarter: 2019Q3

REPORT INFORMATION
  Report Type: Spontaneous
  Country: FR (occurrence: FR)
  Receive Date: 20190730
  Receipt Date: 20190730
  Transmission Date: 20191004
  Serious: Yes (Hospitalization)
  Sender: FDA-Public Use
  Company Number: FR-UCBSA-2019029924

PATIENT
  Age: 70 Year
  Sex: Female
  Weight: 76 kg

DRUGS (21)
  1. RIFAMPICINE [Suspect]
     Active Substance: RIFAMPIN
     Indication: INFECTION
     Dosage: 600 MILLIGRAM, ONCE DAILY (QD)
     Route: 048
     Dates: start: 20190525
  2. IRBESARTAN. [Suspect]
     Active Substance: IRBESARTAN
     Indication: HYPERTENSION
     Dosage: 150 MILLIGRAM, ONCE DAILY (QD)
     Route: 048
  3. SUFENTANIL [Concomitant]
     Active Substance: SUFENTANIL
     Indication: PRODUCT USED FOR UNKNOWN INDICATION
     Route: 042
     Dates: start: 20190521, end: 20190521
  4. LIDOCAINE. [Concomitant]
     Active Substance: LIDOCAINE
     Indication: PRODUCT USED FOR UNKNOWN INDICATION
     Route: 042
     Dates: start: 20190521, end: 20190521
  5. NORADRENALINE [NOREPINEPHRINE] [Concomitant]
     Active Substance: NOREPINEPHRINE
     Indication: PRODUCT USED FOR UNKNOWN INDICATION
     Route: 042
     Dates: start: 20190521, end: 20190521
  6. KETAMINE [Concomitant]
     Active Substance: KETAMINE
     Indication: PRODUCT USED FOR UNKNOWN INDICATION
     Route: 042
     Dates: start: 20190521, end: 20190521
  7. TAZOBACTAM [Concomitant]
     Active Substance: TAZOBACTAM
     Indication: INFECTION
     Route: 042
     Dates: start: 20190522, end: 20190525
  8. PROPOFOL. [Concomitant]
     Active Substance: PROPOFOL
     Indication: PRODUCT USED FOR UNKNOWN INDICATION
     Route: 042
     Dates: start: 20190521, end: 20190521
  9. ACTISKENAN [Concomitant]
     Active Substance: MORPHINE SULFATE
     Indication: PAIN
     Route: 048
     Dates: start: 20190522, end: 20190524
  10. PIPERACILLINE [PIPERACILLIN] [Concomitant]
     Active Substance: PIPERACILLIN
     Indication: INFECTION
     Route: 042
     Dates: start: 20190522, end: 20190525
  11. ROPIVACAINE. [Concomitant]
     Active Substance: ROPIVACAINE HYDROCHLORIDE
     Indication: PRODUCT USED FOR UNKNOWN INDICATION
     Route: 042
     Dates: start: 20190521, end: 20190521
  12. KEPPRA [Suspect]
     Active Substance: LEVETIRACETAM
     Indication: EPILEPSY
     Dosage: 1000 MILLIGRAM DAILY
     Route: 048
  13. OFLOXACINE [Suspect]
     Active Substance: OFLOXACIN
     Indication: INFECTION
     Route: 048
     Dates: start: 20190525, end: 20190526
  14. DOLIPRANE [Suspect]
     Active Substance: ACETAMINOPHEN
     Indication: PAIN
     Dosage: 4 GRAM, ONCE DAILY (QD)
     Route: 048
  15. DROPERIDOL. [Concomitant]
     Active Substance: DROPERIDOL
     Indication: PAIN
     Dates: start: 20190521, end: 20190522
  16. MORPHINE [Concomitant]
     Active Substance: MORPHINE
     Indication: PAIN
     Dates: start: 20190521, end: 20190522
  17. SKENAN [Suspect]
     Active Substance: MORPHINE SULFATE
     Indication: PAIN
     Dosage: 60 MILLIGRAM, ONCE DAILY (QD)
     Route: 048
     Dates: start: 20190523
  18. CETIRIZINE [Suspect]
     Active Substance: CETIRIZINE HYDROCHLORIDE
     Indication: RHINITIS ALLERGIC
     Dosage: 10 MILLIGRAM, ONCE DAILY (QD)
     Route: 048
  19. LINEZOLIDE [Suspect]
     Active Substance: LINEZOLID
     Indication: INFECTION
     Dates: start: 20190522, end: 20190525
  20. LANSOPRAZOLE. [Concomitant]
     Active Substance: LANSOPRAZOLE
     Indication: PRODUCT USED FOR UNKNOWN INDICATION
     Route: 048
     Dates: start: 20190522, end: 20190525
  21. CEFAZOLINE [CEFAZOLIN] [Concomitant]
     Active Substance: CEFAZOLIN
     Indication: PRODUCT USED FOR UNKNOWN INDICATION
     Route: 042
     Dates: start: 20190521, end: 20190521

REACTIONS (1)
  - Urticaria [Recovered/Resolved]

NARRATIVE: CASE EVENT DATE: 20190526
